FAERS Safety Report 6679853-2 (Version None)
Quarter: 2010Q2

REPORT INFORMATION
  Report Type: 
  Country: None (occurrence: None)
  Receive Date: 20100413
  Receipt Date: 20100407
  Transmission Date: 20101027
  Serious: Yes (Other)
  Sender: FDA-Public Use
  Company Number: US-RB-006505-10

PATIENT
  Age: 21 Year
  Sex: Female

DRUGS (3)
  1. SUBOXONE [Suspect]
     Route: 060
     Dates: start: 20090101, end: 20090801
  2. XANAX [Suspect]
     Indication: EUPHORIC MOOD
     Dosage: DOSING INFORMATION UNKNOWN.
     Route: 048
  3. ALCOHOL [Suspect]
     Indication: DRUG USE FOR UNKNOWN INDICATION
     Dosage: AMOUNT CONSUMED UNKNOWN
     Route: 048

REACTIONS (2)
  - ABORTION SPONTANEOUS [None]
  - DRUG EXPOSURE DURING PREGNANCY [None]
